FAERS Safety Report 6969101-8 (Version None)
Quarter: 2010Q3

REPORT INFORMATION
  Report Type: 
  Country: None (occurrence: None)
  Receive Date: 20100907
  Receipt Date: 20100901
  Transmission Date: 20110219
  Serious: Yes (Life-Threatening)
  Sender: FDA-Public Use
  Company Number: JP-ASTRAZENECA-2010SE41405

PATIENT
  Age: 82 Year
  Sex: Male

DRUGS (3)
  1. OMEPRAZOLE [Suspect]
     Route: 048
  2. PLAVIX [Interacting]
     Route: 048
  3. ASPIRIN [Concomitant]
     Route: 048

REACTIONS (2)
  - CORONARY ARTERY OCCLUSION [None]
  - DRUG INTERACTION [None]
